FAERS Safety Report 8708218 (Version 2)
Quarter: 2013Q1

REPORT INFORMATION
  Report Type: Spontaneous
  Country: BR (occurrence: BR)
  Receive Date: 20120806
  Receipt Date: 20130121
  Transmission Date: 20140127
  Serious: Yes (Other)
  Sender: FDA-Public Use
  Company Number: PHHY2012BR066840

PATIENT
  Age: 59 Year
  Sex: Female

DRUGS (4)
  1. DIOVAN HCT [Suspect]
     Indication: HYPERTENSION
     Dosage: 1 DF (160/12.5 MG), DAILY
  2. DIOVAN HCT [Suspect]
     Dosage: 1 DF (320/12.5 MG), DAILY
  3. AMLODIPINE [Concomitant]
     Indication: BLOOD PRESSURE ABNORMAL
     Dosage: 1 DF (5 MG), DAILY
  4. AMLODIPINE [Concomitant]
     Dosage: 2 DF (5 MG), DAILY

REACTIONS (10)
  - Breast cancer [Recovered/Resolved]
  - Hepatic steatosis [Not Recovered/Not Resolved]
  - Biliary cyst [Unknown]
  - Migraine [Unknown]
  - Blood pressure increased [Not Recovered/Not Resolved]
  - Headache [Not Recovered/Not Resolved]
  - Local swelling [Unknown]
  - Dry mouth [Unknown]
  - Dizziness [Unknown]
  - Arthropathy [Not Recovered/Not Resolved]
